FAERS Safety Report 6296963-2 (Version None)
Quarter: 2009Q3

REPORT INFORMATION
  Report Type: 
  Country: None (occurrence: None)
  Receive Date: 20090804
  Receipt Date: 20090722
  Transmission Date: 20100115
  Serious: Yes (Congenital Anomaly)
  Sender: FDA-Public Use
  Company Number: GB-ELI_LILLY_AND_COMPANY-GB200907007226

PATIENT

DRUGS (2)
  1. CYMBALTA [Suspect]
     Indication: DEPRESSION
     Dosage: 60 MG, EACH MORNING
     Route: 064
     Dates: start: 20080122, end: 20080822
  2. CYMBALTA [Suspect]
     Dosage: 30 MG, UNK
     Route: 064
     Dates: start: 20080822, end: 20080901

REACTIONS (3)
  - DRUG EXPOSURE DURING PREGNANCY [None]
  - MUCOPOLYSACCHARIDOSIS [None]
  - WOUND [None]
